FAERS Safety Report 23113973 (Version 1)
Quarter: 2023Q4

REPORT INFORMATION
  Report Type: Spontaneous
  Country: US (occurrence: None)
  Receive Date: 20231024
  Receipt Date: 20231024
  Transmission Date: 20240110
  Serious: No
  Sender: FDA-Public Use
  Company Number: None

PATIENT
  Sex: Female

DRUGS (1)
  1. DESMOPRESSIN ACETATE [Suspect]
     Active Substance: DESMOPRESSIN ACETATE
     Indication: Platelet disorder
     Dosage: OTHER FREQUENCY : 2 HRS. BEFORE PROC;?
     Route: 045
     Dates: start: 202310

REACTIONS (1)
  - Product dispensing error [None]
